FAERS Safety Report 18399243 (Version 4)
Quarter: 2021Q2

REPORT INFORMATION
  Report Type: Spontaneous
  Country: US (occurrence: US)
  Receive Date: 20201019
  Receipt Date: 20210510
  Transmission Date: 20210717
  Serious: No
  Sender: FDA-Public Use
  Company Number: US-PFIZER INC-2020401413

PATIENT
  Age: 47 Year
  Sex: Female

DRUGS (1)
  1. IBRANCE [Suspect]
     Active Substance: PALBOCICLIB
     Indication: BREAST CANCER FEMALE
     Dosage: 100 MG, CYCLIC(100 MG DAILY FOR 21 DAYS/THEN STOP FOR 7 DAYS)
     Route: 048
     Dates: start: 20190912

REACTIONS (1)
  - Alopecia [Not Recovered/Not Resolved]
